FAERS Safety Report 10636757 (Version 2)
Quarter: 2014Q4

REPORT INFORMATION
  Report Type: Spontaneous
  Country: US (occurrence: US)
  Receive Date: 20141208
  Receipt Date: 20141208
  Transmission Date: 20150529
  Serious: Yes (Disabling)
  Sender: FDA-Public Use
  Company Number: US-ROCHE-1484277

PATIENT
  Sex: Female
  Weight: 60.84 kg

DRUGS (121)
  1. RITUXAN [Suspect]
     Active Substance: RITUXIMAB
     Dosage: WEEKLY FOR 4 WEEKS WITH 6 MONTHS INTERVAL
     Route: 042
     Dates: start: 20110601
  2. RITUXAN [Suspect]
     Active Substance: RITUXIMAB
     Dosage: WEEKLY FOR 4 WEEKS WITH 6 MONTHS INTERVAL
     Route: 042
     Dates: start: 20110720
  3. RITUXAN [Suspect]
     Active Substance: RITUXIMAB
     Dosage: WEEKLY FOR 4 WEEKS WITH 6 MONTHS INTERVAL
     Route: 042
     Dates: start: 20111121
  4. RITUXAN [Suspect]
     Active Substance: RITUXIMAB
     Dosage: WEEKLY FOR 4 WEEKS WITH 6 MONTHS INTERVAL
     Route: 042
     Dates: start: 20111212
  5. RITUXAN [Suspect]
     Active Substance: RITUXIMAB
     Dosage: WEEKLY FOR 4 WEEKS WITH 6 MONTHS INTERVAL
     Route: 042
     Dates: start: 20121008
  6. RITUXAN [Suspect]
     Active Substance: RITUXIMAB
     Dosage: WEEKLY FOR 4 WEEKS WITH 6 MONTHS INTERVAL?UNKNOWN IF RECEIVED ON 23/OCT/2012
     Route: 042
     Dates: start: 20140414
  7. FLAXSEED [Concomitant]
     Active Substance: FLAX SEED
     Route: 065
     Dates: start: 20141125
  8. IMURAN [Concomitant]
     Active Substance: AZATHIOPRINE
     Route: 065
     Dates: start: 20110214
  9. TOPROL XL [Concomitant]
     Active Substance: METOPROLOL SUCCINATE
     Route: 065
  10. CYTOXAN [Concomitant]
     Active Substance: CYCLOPHOSPHAMIDE
     Route: 042
     Dates: start: 20101207
  11. CYTOXAN [Concomitant]
     Active Substance: CYCLOPHOSPHAMIDE
     Route: 042
     Dates: end: 20110113
  12. BACTRIM DS [Concomitant]
     Active Substance: SULFAMETHOXAZOLE\TRIMETHOPRIM
     Route: 065
     Dates: start: 20101129
  13. BACTRIM DS [Concomitant]
     Active Substance: SULFAMETHOXAZOLE\TRIMETHOPRIM
     Route: 065
     Dates: start: 20101208
  14. PREDNISONE. [Concomitant]
     Active Substance: PREDNISONE
     Route: 065
     Dates: start: 20110601
  15. PREDNISONE. [Concomitant]
     Active Substance: PREDNISONE
     Route: 065
     Dates: start: 20110720
  16. ASA [Concomitant]
     Active Substance: ASPIRIN
     Route: 065
  17. ALLEGRA [Concomitant]
     Active Substance: FEXOFENADINE HYDROCHLORIDE
     Dosage: AS NEEDED
     Route: 065
     Dates: start: 20140814
  18. DUREZOL [Concomitant]
     Active Substance: DIFLUPREDNATE
     Route: 065
     Dates: start: 20140924
  19. PRILOSEC [Concomitant]
     Active Substance: OMEPRAZOLE MAGNESIUM
     Route: 065
     Dates: start: 20101207
  20. PRILOSEC [Concomitant]
     Active Substance: OMEPRAZOLE MAGNESIUM
     Route: 065
     Dates: start: 20110601
  21. PRILOSEC [Concomitant]
     Active Substance: OMEPRAZOLE MAGNESIUM
     Route: 065
     Dates: start: 20110629
  22. RITUXAN [Suspect]
     Active Substance: RITUXIMAB
     Dosage: WEEKLY FOR 4 WEEKS WITH 6 MONTHS INTERVAL
     Route: 042
     Dates: start: 20110822
  23. RITUXAN [Suspect]
     Active Substance: RITUXIMAB
     Dosage: WEEKLY FOR 4 WEEKS WITH 6 MONTHS INTERVAL
     Route: 042
     Dates: start: 20111214
  24. RITUXAN [Suspect]
     Active Substance: RITUXIMAB
     Dosage: WEEKLY FOR 4 WEEKS WITH 6 MONTHS INTERVAL
     Route: 042
     Dates: start: 20120206
  25. RITUXAN [Suspect]
     Active Substance: RITUXIMAB
     Dosage: WEEKLY FOR 4 WEEKS WITH 6 MONTHS INTERVAL
     Route: 042
     Dates: start: 20141024
  26. RITUXAN [Suspect]
     Active Substance: RITUXIMAB
     Dosage: WEEKLY FOR 4 WEEKS WITH 6 MONTHS INTERVAL?UNKNOWN IF RECEIVED ON 23/OCT/2012
     Route: 042
     Dates: start: 20121031
  27. RITUXAN [Suspect]
     Active Substance: RITUXIMAB
     Dosage: WEEKLY FOR 4 WEEKS WITH 6 MONTHS INTERVAL?UNKNOWN IF RECEIVED ON 23/OCT/2012
     Route: 042
     Dates: start: 20141125
  28. CELLCEPT [Suspect]
     Active Substance: MYCOPHENOLATE MOFETIL\MYCOPHENOLATE MOFETIL HYDROCHLORIDE
     Indication: PRODUCT USED FOR UNKNOWN INDICATION
     Route: 065
     Dates: start: 20120319
  29. FLAXSEED [Concomitant]
     Active Substance: FLAX SEED
     Route: 065
     Dates: start: 20140414
  30. FLAXSEED [Concomitant]
     Active Substance: FLAX SEED
     Route: 065
     Dates: start: 20140814
  31. SOLU-MEDROL [Concomitant]
     Active Substance: METHYLPREDNISOLONE SODIUM SUCCINATE
     Route: 042
     Dates: start: 20110316
  32. CYTOXAN [Concomitant]
     Active Substance: CYCLOPHOSPHAMIDE
     Route: 042
     Dates: start: 20101129
  33. PREDNISONE. [Concomitant]
     Active Substance: PREDNISONE
     Route: 065
     Dates: start: 20101207
  34. PREDNISONE. [Concomitant]
     Active Substance: PREDNISONE
     Route: 065
     Dates: start: 20110113, end: 20110113
  35. PREDNISONE. [Concomitant]
     Active Substance: PREDNISONE
     Route: 065
     Dates: start: 20110614
  36. DUREZOL [Concomitant]
     Active Substance: DIFLUPREDNATE
     Route: 065
     Dates: start: 20140814
  37. PRILOSEC [Concomitant]
     Active Substance: OMEPRAZOLE MAGNESIUM
     Route: 065
     Dates: start: 20101014
  38. PRILOSEC [Concomitant]
     Active Substance: OMEPRAZOLE MAGNESIUM
     Route: 065
     Dates: start: 20110609
  39. PRILOSEC [Concomitant]
     Active Substance: OMEPRAZOLE MAGNESIUM
     Dosage: AS NEEDED
     Route: 065
     Dates: start: 20140426
  40. RITUXAN [Suspect]
     Active Substance: RITUXIMAB
     Dosage: WEEKLY FOR 4 WEEKS WITH 6 MONTHS INTERVAL
     Route: 042
     Dates: start: 20110614
  41. RITUXAN [Suspect]
     Active Substance: RITUXIMAB
     Dosage: WEEKLY FOR 4 WEEKS WITH 6 MONTHS INTERVAL
     Route: 042
     Dates: start: 20120719
  42. CELLCEPT [Suspect]
     Active Substance: MYCOPHENOLATE MOFETIL\MYCOPHENOLATE MOFETIL HYDROCHLORIDE
     Route: 065
     Dates: start: 20120326
  43. CELLCEPT [Suspect]
     Active Substance: MYCOPHENOLATE MOFETIL\MYCOPHENOLATE MOFETIL HYDROCHLORIDE
     Route: 065
     Dates: start: 20120402, end: 20120409
  44. FLAXSEED [Concomitant]
     Active Substance: FLAX SEED
     Route: 065
     Dates: start: 20121001
  45. FLAXSEED [Concomitant]
     Active Substance: FLAX SEED
     Route: 065
     Dates: start: 20120110
  46. FLAXSEED [Concomitant]
     Active Substance: FLAX SEED
     Route: 065
     Dates: start: 20121024
  47. FLAXSEED [Concomitant]
     Active Substance: FLAX SEED
     Route: 065
     Dates: start: 20140924
  48. SOLU-MEDROL [Concomitant]
     Active Substance: METHYLPREDNISOLONE SODIUM SUCCINATE
     Route: 042
     Dates: start: 20110614
  49. SOLU-MEDROL [Concomitant]
     Active Substance: METHYLPREDNISOLONE SODIUM SUCCINATE
     Route: 042
     Dates: start: 20110713
  50. PREDNISONE. [Concomitant]
     Active Substance: PREDNISONE
     Route: 065
     Dates: start: 20110214
  51. NEURONTIN [Concomitant]
     Active Substance: GABAPENTIN
     Route: 065
  52. PRILOSEC [Concomitant]
     Active Substance: OMEPRAZOLE MAGNESIUM
     Route: 065
     Dates: end: 20110113
  53. PRILOSEC [Concomitant]
     Active Substance: OMEPRAZOLE MAGNESIUM
     Route: 065
     Dates: start: 20111205
  54. PRILOSEC [Concomitant]
     Active Substance: OMEPRAZOLE MAGNESIUM
     Dosage: AS NEEDED
     Route: 065
     Dates: start: 20111214
  55. RITUXAN [Suspect]
     Active Substance: RITUXIMAB
     Dosage: WEEKLY FOR 4 WEEKS WITH 6 MONTHS INTERVAL
     Route: 042
     Dates: start: 20110609
  56. RITUXAN [Suspect]
     Active Substance: RITUXIMAB
     Dosage: WEEKLY FOR 4 WEEKS WITH 6 MONTHS INTERVAL
     Route: 042
     Dates: start: 20110629
  57. RITUXAN [Suspect]
     Active Substance: RITUXIMAB
     Dosage: WEEKLY FOR 4 WEEKS WITH 6 MONTHS INTERVAL?UNKNOWN IF RECEIVED ON 23/OCT/2012
     Route: 042
     Dates: start: 201410
  58. FLAXSEED [Concomitant]
     Active Substance: FLAX SEED
     Route: 065
     Dates: start: 20121031
  59. IMURAN [Concomitant]
     Active Substance: AZATHIOPRINE
     Route: 065
     Dates: start: 20110113
  60. BACTRIM DS [Concomitant]
     Active Substance: SULFAMETHOXAZOLE\TRIMETHOPRIM
     Route: 065
     Dates: start: 20101014
  61. BACTRIM DS [Concomitant]
     Active Substance: SULFAMETHOXAZOLE\TRIMETHOPRIM
     Route: 065
     Dates: start: 20101028
  62. BACTRIM DS [Concomitant]
     Active Substance: SULFAMETHOXAZOLE\TRIMETHOPRIM
     Route: 065
     Dates: end: 20110113
  63. PREDNISONE. [Concomitant]
     Active Substance: PREDNISONE
     Route: 065
     Dates: start: 20101014
  64. PREDNISONE. [Concomitant]
     Active Substance: PREDNISONE
     Route: 065
     Dates: start: 20110629
  65. PREDNISONE. [Concomitant]
     Active Substance: PREDNISONE
     Route: 065
     Dates: end: 20110822
  66. PRILOSEC [Concomitant]
     Active Substance: OMEPRAZOLE MAGNESIUM
     Route: 065
     Dates: start: 20101208
  67. RITUXAN [Suspect]
     Active Substance: RITUXIMAB
     Dosage: WEEKLY FOR 4 WEEKS WITH 6 MONTHS INTERVAL
     Route: 042
     Dates: start: 20110316
  68. RITUXAN [Suspect]
     Active Substance: RITUXIMAB
     Dosage: WEEKLY FOR 4 WEEKS WITH 6 MONTHS INTERVAL
     Route: 042
     Dates: start: 20110413
  69. RITUXAN [Suspect]
     Active Substance: RITUXIMAB
     Dosage: WEEKLY FOR 4 WEEKS WITH 6 MONTHS INTERVAL
     Route: 042
     Dates: start: 20110713
  70. RITUXAN [Suspect]
     Active Substance: RITUXIMAB
     Dosage: WEEKLY FOR 4 WEEKS WITH 6 MONTHS INTERVAL
     Route: 042
     Dates: start: 20111205
  71. RITUXAN [Suspect]
     Active Substance: RITUXIMAB
     Dosage: WEEKLY FOR 4 WEEKS WITH 6 MONTHS INTERVAL
     Route: 042
     Dates: start: 20120319
  72. RITUXAN [Suspect]
     Active Substance: RITUXIMAB
     Dosage: WEEKLY FOR 4 WEEKS WITH 6 MONTHS INTERVAL
     Route: 042
     Dates: start: 20120402
  73. RITUXAN [Suspect]
     Active Substance: RITUXIMAB
     Dosage: WEEKLY FOR 4 WEEKS WITH 6 MONTHS INTERVAL
     Route: 042
     Dates: start: 20121001
  74. FLAXSEED [Concomitant]
     Active Substance: FLAX SEED
     Route: 065
     Dates: start: 20120828
  75. FLAXSEED [Concomitant]
     Active Substance: FLAX SEED
     Route: 065
     Dates: start: 20140408
  76. FLAXSEED [Concomitant]
     Active Substance: FLAX SEED
     Route: 065
     Dates: start: 201410
  77. IMURAN [Concomitant]
     Active Substance: AZATHIOPRINE
     Route: 065
     Dates: start: 20110210
  78. IMURAN [Concomitant]
     Active Substance: AZATHIOPRINE
     Route: 065
     Dates: start: 20110316
  79. IMURAN [Concomitant]
     Active Substance: AZATHIOPRINE
     Route: 065
     Dates: start: 20110413, end: 20110516
  80. SOLU-MEDROL [Concomitant]
     Active Substance: METHYLPREDNISOLONE SODIUM SUCCINATE
     Route: 042
     Dates: start: 20110609
  81. PREDNISONE. [Concomitant]
     Active Substance: PREDNISONE
     Route: 065
     Dates: start: 20110316
  82. ADVIL [Concomitant]
     Active Substance: IBUPROFEN
     Route: 065
     Dates: start: 20101006, end: 20101014
  83. ALLEGRA [Concomitant]
     Active Substance: FEXOFENADINE HYDROCHLORIDE
     Dosage: AS NEEDED
     Route: 065
     Dates: start: 20140924
  84. PRILOSEC [Concomitant]
     Active Substance: OMEPRAZOLE MAGNESIUM
     Route: 065
     Dates: start: 20101028, end: 20101129
  85. PRILOSEC [Concomitant]
     Active Substance: OMEPRAZOLE MAGNESIUM
     Route: 065
     Dates: start: 20110720
  86. PRILOSEC [Concomitant]
     Active Substance: OMEPRAZOLE MAGNESIUM
     Dosage: AS NEEDED
     Route: 065
     Dates: start: 20120206
  87. PRILOSEC [Concomitant]
     Active Substance: OMEPRAZOLE MAGNESIUM
     Dosage: AS NEEDED
     Route: 065
     Dates: start: 20140401
  88. RITUXAN [Suspect]
     Active Substance: RITUXIMAB
     Dosage: WEEKLY FOR 4 WEEKS WITH 6 MONTHS INTERVAL
     Route: 042
     Dates: start: 20111003
  89. RITUXAN [Suspect]
     Active Substance: RITUXIMAB
     Dosage: WEEKLY FOR 4 WEEKS WITH 6 MONTHS INTERVAL
     Route: 042
     Dates: start: 20120409
  90. RITUXAN [Suspect]
     Active Substance: RITUXIMAB
     Dosage: WEEKLY FOR 4 WEEKS WITH 6 MONTHS INTERVAL?UNKNOWN IF RECEIVED ON 23/OCT/2012
     Route: 042
     Dates: start: 20140401
  91. RITUXAN [Suspect]
     Active Substance: RITUXIMAB
     Dosage: WEEKLY FOR 4 WEEKS WITH 6 MONTHS INTERVAL?UNKNOWN IF RECEIVED ON 23/OCT/2012
     Route: 042
     Dates: start: 20140814
  92. RITUXAN [Suspect]
     Active Substance: RITUXIMAB
     Dosage: WEEKLY FOR 4 WEEKS WITH 6 MONTHS INTERVAL?UNKNOWN IF RECEIVED ON 23/OCT/2012
     Route: 042
     Dates: start: 20140924
  93. SOLU-MEDROL [Concomitant]
     Active Substance: METHYLPREDNISOLONE SODIUM SUCCINATE
     Route: 042
     Dates: start: 20110413
  94. PREDNISONE. [Concomitant]
     Active Substance: PREDNISONE
     Route: 065
     Dates: start: 20110413
  95. PREDNISONE. [Concomitant]
     Active Substance: PREDNISONE
     Route: 065
     Dates: start: 20110609
  96. PRILOSEC [Concomitant]
     Active Substance: OMEPRAZOLE MAGNESIUM
     Route: 065
     Dates: start: 20110614
  97. PRILOSEC [Concomitant]
     Active Substance: OMEPRAZOLE MAGNESIUM
     Dosage: AS NEEDED
     Route: 065
     Dates: start: 20140408
  98. RITUXAN [Suspect]
     Active Substance: RITUXIMAB
     Indication: POLYARTERITIS NODOSA
     Dosage: WEEKLY FOR 4 WEEKS WITH 6 MONTHS INTERVAL?EVERY 4 MONTHS
     Route: 042
     Dates: start: 20110214
  99. RITUXAN [Suspect]
     Active Substance: RITUXIMAB
     Dosage: WEEKLY FOR 4 WEEKS WITH 6 MONTHS INTERVAL
     Route: 042
     Dates: start: 20120620
  100. RITUXAN [Suspect]
     Active Substance: RITUXIMAB
     Dosage: WEEKLY FOR 4 WEEKS WITH 6 MONTHS INTERVAL?UNKNOWN IF RECEIVED ON 23/OCT/2012
     Route: 042
     Dates: start: 20140426
  101. FLAXSEED [Concomitant]
     Active Substance: FLAX SEED
     Route: 065
     Dates: start: 20120304
  102. SOLU-MEDROL [Concomitant]
     Active Substance: METHYLPREDNISOLONE SODIUM SUCCINATE
     Route: 042
     Dates: start: 20101208
  103. SOLU-MEDROL [Concomitant]
     Active Substance: METHYLPREDNISOLONE SODIUM SUCCINATE
     Route: 042
     Dates: start: 20110629
  104. CYTOXAN [Concomitant]
     Active Substance: CYCLOPHOSPHAMIDE
     Route: 042
     Dates: start: 20101028
  105. PREDNISONE. [Concomitant]
     Active Substance: PREDNISONE
     Route: 065
     Dates: start: 20101129
  106. PREDNISONE. [Concomitant]
     Active Substance: PREDNISONE
     Route: 065
     Dates: start: 20110713
  107. PRILOSEC [Concomitant]
     Active Substance: OMEPRAZOLE MAGNESIUM
     Route: 065
     Dates: start: 20110713
  108. PRILOSEC [Concomitant]
     Active Substance: OMEPRAZOLE MAGNESIUM
     Route: 065
     Dates: start: 20111212
  109. RITUXAN [Suspect]
     Active Substance: RITUXIMAB
     Dosage: WEEKLY FOR 4 WEEKS WITH 6 MONTHS INTERVAL
     Route: 042
     Dates: start: 20110516
  110. RITUXAN [Suspect]
     Active Substance: RITUXIMAB
     Dosage: WEEKLY FOR 4 WEEKS WITH 6 MONTHS INTERVAL
     Route: 042
     Dates: start: 20120326
  111. RITUXAN [Suspect]
     Active Substance: RITUXIMAB
     Dosage: WEEKLY FOR 4 WEEKS WITH 6 MONTHS INTERVAL?UNKNOWN IF RECEIVED ON 23/OCT/2012
     Route: 042
     Dates: start: 20140408
  112. FLAXSEED [Concomitant]
     Active Substance: FLAX SEED
     Route: 065
     Dates: start: 20121023
  113. FLAXSEED [Concomitant]
     Active Substance: FLAX SEED
     Route: 065
     Dates: start: 20140401
  114. SOLU-MEDROL [Concomitant]
     Active Substance: METHYLPREDNISOLONE SODIUM SUCCINATE
     Route: 042
     Dates: start: 20110113
  115. SOLU-MEDROL [Concomitant]
     Active Substance: METHYLPREDNISOLONE SODIUM SUCCINATE
     Route: 042
     Dates: start: 20110214
  116. CYTOXAN [Concomitant]
     Active Substance: CYCLOPHOSPHAMIDE
     Route: 042
     Dates: start: 20101208
  117. BACTRIM DS [Concomitant]
     Active Substance: SULFAMETHOXAZOLE\TRIMETHOPRIM
     Route: 065
     Dates: start: 20101207
  118. PREDNISONE. [Concomitant]
     Active Substance: PREDNISONE
     Route: 065
     Dates: start: 20101208
  119. PRILOSEC [Concomitant]
     Active Substance: OMEPRAZOLE MAGNESIUM
     Route: 065
     Dates: start: 20111112
  120. PRILOSEC [Concomitant]
     Active Substance: OMEPRAZOLE MAGNESIUM
     Route: 065
     Dates: start: 20111128
  121. PRILOSEC [Concomitant]
     Active Substance: OMEPRAZOLE MAGNESIUM
     Dosage: AS NEEDED
     Route: 065
     Dates: start: 20140414

REACTIONS (5)
  - Psoriatic arthropathy [Not Recovered/Not Resolved]
  - Psoriasis [Not Recovered/Not Resolved]
  - Uveitis [Not Recovered/Not Resolved]
  - Pustular psoriasis [Unknown]
  - Iridocyclitis [Not Recovered/Not Resolved]
